FAERS Safety Report 7378860-4 (Version None)
Quarter: 2011Q1

REPORT INFORMATION
  Report Type: 
  Country: None (occurrence: None)
  Receive Date: 20110328
  Receipt Date: 20110318
  Transmission Date: 20110831
  Serious: Yes (Death)
  Sender: FDA-Public Use
  Company Number: PHHY2011GT22527

PATIENT
  Age: 75 Year
  Sex: Male

DRUGS (2)
  1. MIFLONIDE [Suspect]
  2. FORADIL [Suspect]

REACTIONS (1)
  - CEREBROVASCULAR ACCIDENT [None]
